FAERS Safety Report 20148274 (Version 2)
Quarter: 2022Q1

REPORT INFORMATION
  Report Type: Report from Study
  Country: US (occurrence: US)
  Receive Date: 20211204
  Receipt Date: 20220206
  Transmission Date: 20220423
  Serious: No
  Sender: FDA-Public Use
  Company Number: US-NOVARTISTESTPH-NVSC2021US277454

PATIENT
  Sex: Female

DRUGS (1)
  1. COSENTYX [Suspect]
     Active Substance: SECUKINUMAB
     Indication: Psoriatic arthropathy
     Dosage: 150 MG, QW
     Route: 058
     Dates: start: 20211120

REACTIONS (6)
  - Incorrect dose administered [Unknown]
  - Accidental exposure to product [Unknown]
  - Illness [Unknown]
  - Asthma [Unknown]
  - Nasopharyngitis [Unknown]
  - Hypersensitivity [Unknown]
